FAERS Safety Report 17353014 (Version 2)
Quarter: 2020Q1

REPORT INFORMATION
  Report Type: Spontaneous
  Country: NL (occurrence: NL)
  Receive Date: 20200131
  Receipt Date: 20200309
  Transmission Date: 20200409
  Serious: Yes (Hospitalization)
  Sender: FDA-Public Use
  Company Number: NL-BAXTER-2020BAX002332

PATIENT

DRUGS (15)
  1. ENDOXAN I.V., POEDER VOOR OPLOSSING VOOR INJECTIE (LYOFILISAAT) 2000 M [Suspect]
     Active Substance: CYCLOPHOSPHAMIDE
     Indication: PRODUCT USED FOR UNKNOWN INDICATION
     Dosage: INDUCTION CYCLE 2
     Route: 042
     Dates: start: 20191008, end: 20191121
  2. VINCRISTINE [Suspect]
     Active Substance: VINCRISTINE
     Indication: PRODUCT USED FOR UNKNOWN INDICATION
     Route: 042
     Dates: start: 20191008, end: 20191121
  3. PREDNISOLONE. [Suspect]
     Active Substance: PREDNISOLONE
     Indication: PRODUCT USED FOR UNKNOWN INDICATION
     Route: 037
     Dates: start: 20191031, end: 20191121
  4. ETOPOSIDE. [Suspect]
     Active Substance: ETOPOSIDE
     Dosage: INDUCTION CYCLE 3
     Route: 042
     Dates: start: 20191118, end: 20191121
  5. PREDNISOLONE. [Suspect]
     Active Substance: PREDNISOLONE
     Route: 048
     Dates: start: 20191008, end: 20191121
  6. RITUXIMAB. [Suspect]
     Active Substance: RITUXIMAB
     Dosage: INDUCTION CYCLE 3
     Route: 042
     Dates: start: 20191118, end: 20191121
  7. DOXIL [Suspect]
     Active Substance: DOXORUBICIN HYDROCHLORIDE
     Indication: PRODUCT USED FOR UNKNOWN INDICATION
     Dosage: INDUCTION CYCLE 2
     Route: 065
     Dates: start: 20191008, end: 20191121
  8. DOXIL [Suspect]
     Active Substance: DOXORUBICIN HYDROCHLORIDE
     Dosage: INDUCTION CYCLE 3
     Route: 065
     Dates: start: 20191118, end: 20191121
  9. ENDOXAN I.V., POEDER VOOR OPLOSSING VOOR INJECTIE (LYOFILISAAT) 2000 M [Suspect]
     Active Substance: CYCLOPHOSPHAMIDE
     Dosage: INDUCTION CYCLE 3
     Route: 042
     Dates: start: 20191118, end: 20191121
  10. PREDNISOLONE. [Suspect]
     Active Substance: PREDNISOLONE
     Route: 048
     Dates: start: 20191118, end: 20191121
  11. VINCRISTINE [Suspect]
     Active Substance: VINCRISTINE
     Dosage: INDUCTION CYCLE 3
     Route: 042
     Dates: start: 20191118, end: 20191121
  12. G-CSF (GRANULOCYTE COLONY STIMULATING FACTOR) [Suspect]
     Active Substance: GRANULOCYTE COLONY-STIMULATING FACTOR NOS
     Indication: PRODUCT USED FOR UNKNOWN INDICATION
     Route: 058
     Dates: start: 20191102, end: 20191121
  13. ETOPOSIDE. [Suspect]
     Active Substance: ETOPOSIDE
     Indication: PRODUCT USED FOR UNKNOWN INDICATION
     Dosage: INDUCTION CYCLE 2
     Route: 042
     Dates: start: 20191008, end: 20191121
  14. RITUXIMAB. [Suspect]
     Active Substance: RITUXIMAB
     Indication: PRODUCT USED FOR UNKNOWN INDICATION
     Dosage: INDUCTION CYCLE 2
     Route: 042
     Dates: start: 20191008, end: 20191121
  15. METHOTREXATE. [Suspect]
     Active Substance: METHOTREXATE
     Indication: PRODUCT USED FOR UNKNOWN INDICATION
     Route: 037
     Dates: start: 20191031, end: 20191121

REACTIONS (2)
  - Serratia bacteraemia [Recovered/Resolved]
  - Sepsis [Recovered/Resolved]

NARRATIVE: CASE EVENT DATE: 20191205
